FAERS Safety Report 16826639 (Version 1)
Quarter: 2019Q3

REPORT INFORMATION
  Report Type: Spontaneous
  Country: CZ (occurrence: CZ)
  Receive Date: 20190919
  Receipt Date: 20190919
  Transmission Date: 20191005
  Serious: Yes (Hospitalization)
  Sender: FDA-Public Use
  Company Number: PHHY2019CZ168557

PATIENT
  Age: 30 Year
  Sex: Female

DRUGS (5)
  1. DOSTINEX [Concomitant]
     Active Substance: CABERGOLINE
     Indication: LACTATION INHIBITION THERAPY
     Dosage: UNK UKN, UNK
     Route: 065
  2. AMOXICILLIN. [Suspect]
     Active Substance: AMOXICILLIN
     Indication: MASTITIS
     Dosage: 750 MG, Q8H
     Route: 065
  3. AMOXICILLIN. [Suspect]
     Active Substance: AMOXICILLIN
     Dosage: 750 MG, Q8H
     Route: 065
  4. CEFUROXIME. [Suspect]
     Active Substance: CEFUROXIME
     Indication: MASTITIS
     Dosage: 500 MG, Q12H
     Route: 065
  5. DOSTINEX [Concomitant]
     Active Substance: CABERGOLINE
     Indication: LACTATION INHIBITION THERAPY
     Dosage: UNK UKN, UNK
     Route: 065

REACTIONS (10)
  - Lactation disorder [Recovering/Resolving]
  - Condition aggravated [Recovering/Resolving]
  - Breast pain [Recovering/Resolving]
  - Fatigue [Recovering/Resolving]
  - Maternal exposure during breast feeding [Unknown]
  - Mastitis [Recovering/Resolving]
  - Pyrexia [Recovering/Resolving]
  - Nausea [Recovering/Resolving]
  - Cellulitis [Recovering/Resolving]
  - Product use in unapproved indication [Unknown]
